FAERS Safety Report 6678790-7 (Version None)
Quarter: 2010Q2

REPORT INFORMATION
  Report Type: 
  Country: None (occurrence: None)
  Receive Date: 20100408
  Receipt Date: 20100324
  Transmission Date: 20101027
  Serious: Yes (Other)
  Sender: FDA-Public Use
  Company Number: 2010AL001899

PATIENT
  Age: 53 Year
  Sex: Male

DRUGS (18)
  1. FINASTERIDE [Suspect]
     Indication: OEDEMA
     Dosage: 5 MG; QD; PO
     Route: 048
     Dates: start: 20080801
  2. METFORMIN HCL [Suspect]
     Indication: DIABETES MELLITUS
     Dosage: PO
     Route: 048
     Dates: end: 20090101
  3. OXYCODONE HCL [Suspect]
     Dosage: 5 MG; PRN;
     Dates: start: 20100201
  4. IPRATROPIUM BROMIDE [Suspect]
     Dates: start: 20031201, end: 20061101
  5. RANITIDINE [Suspect]
     Indication: MYALGIA
     Dosage: 300 MG; TID; PO
     Route: 048
     Dates: start: 20030901
  6. ALLOPURINOL [Concomitant]
  7. OMEPRAZOLE [Concomitant]
  8. SIMVASTATIN [Concomitant]
  9. GLIPIZIDE [Concomitant]
  10. ACTOS [Concomitant]
  11. COLCHICINE [Concomitant]
  12. GLUCOPHAGE [Concomitant]
  13. LORATADINE [Concomitant]
  14. NASAREL [Concomitant]
  15. PENTOXIFYLLINE [Concomitant]
  16. ALBUTEROL [Concomitant]
  17. GLUCOPHAGE [Concomitant]
  18. LASIX [Concomitant]

REACTIONS (11)
  - ALANINE AMINOTRANSFERASE INCREASED [None]
  - BLOOD GLUCOSE INCREASED [None]
  - GINGIVAL DISORDER [None]
  - INFLUENZA [None]
  - JOINT SWELLING [None]
  - MUSCLE SPASMS [None]
  - NASOPHARYNGITIS [None]
  - OEDEMA PERIPHERAL [None]
  - RESPIRATORY TRACT INFECTION VIRAL [None]
  - SINUS DISORDER [None]
  - TREATMENT NONCOMPLIANCE [None]
